FAERS Safety Report 8462732 (Version 3)
Quarter: 2012Q4

REPORT INFORMATION
  Report Type: 
  Country: US (occurrence: US)
  Receive Date: 20120316
  Receipt Date: 20121221
  Transmission Date: 20130627
  Serious: Yes (Hospitalization)
  Sender: FDA-Public Use
  Company Number: US-BAYER-2012-024442

PATIENT
  Age: 30 Year
  Sex: Female
  Weight: 91 kg

DRUGS (3)
  1. YASMIN [Suspect]
     Dosage: UNK
     Dates: start: 2001, end: 2007
  2. METFORMIN [Concomitant]
     Indication: POLYCYSTIC OVARIAN SYNDROME
     Dosage: UNK
     Dates: start: 2010
  3. METFORMIN [Concomitant]
     Indication: DIABETES

REACTIONS (5)
  - Gallbladder disorder [None]
  - Pain [None]
  - General physical health deterioration [None]
  - Anxiety [None]
  - Anhedonia [None]
